FAERS Safety Report 4939067-0 (Version None)
Quarter: 2006Q1

REPORT INFORMATION
  Report Type: 
  Country: None (occurrence: None)
  Receive Date: 20060309
  Receipt Date: 20050621
  Transmission Date: 20060701
  Serious: Yes (Hospitalization)
  Sender: FDA-Public Use
  Company Number: US-MERCK-0506USA03193

PATIENT
  Age: 54 Year
  Sex: Male
  Weight: 109 kg

DRUGS (8)
  1. VIOXX [Suspect]
     Indication: TENDONITIS
     Route: 048
     Dates: start: 20010125, end: 20040126
  2. VIOXX [Suspect]
     Route: 048
     Dates: start: 20010125, end: 20040126
  3. VIOXX [Suspect]
     Indication: BACK PAIN
     Route: 048
     Dates: start: 20010125, end: 20040126
  4. VIOXX [Suspect]
     Route: 048
     Dates: start: 20010125, end: 20040126
  5. ASPIRIN [Concomitant]
     Indication: PAIN
     Route: 048
     Dates: start: 19980101
  6. ZOCOR [Concomitant]
     Indication: BLOOD CHOLESTEROL
     Route: 048
  7. VICODIN [Concomitant]
     Indication: BACK PAIN
     Route: 048
  8. METHOCARBAMOL [Concomitant]
     Indication: MUSCLE SPASMS
     Route: 048

REACTIONS (15)
  - ACTINIC KERATOSIS [None]
  - ADVERSE EVENT [None]
  - ANAEMIA POSTOPERATIVE [None]
  - ARTHROPATHY [None]
  - CARDIOMEGALY [None]
  - CARDIOVASCULAR DISORDER [None]
  - COLONIC POLYP [None]
  - CORONARY ARTERY DISEASE [None]
  - EPICONDYLITIS [None]
  - HYPERTENSION [None]
  - MUSCULOSKELETAL DISCOMFORT [None]
  - MYOCARDIAL INFARCTION [None]
  - MYOCARDIAL ISCHAEMIA [None]
  - SEBORRHOEIC DERMATITIS [None]
  - SEBORRHOEIC KERATOSIS [None]
